FAERS Safety Report 8719257 (Version 2)
Quarter: 2013Q4

REPORT INFORMATION
  Report Type: Spontaneous
  Country: US (occurrence: US)
  Receive Date: 20120813
  Receipt Date: 20131101
  Transmission Date: 20140711
  Serious: No
  Sender: FDA-Public Use
  Company Number: US-009507513-1208USA002868

PATIENT
  Age: 43 Year
  Sex: Female
  Weight: 86.17 kg

DRUGS (2)
  1. NUVARING [Suspect]
     Indication: CONTRACEPTION
     Dosage: UNK
     Route: 067
     Dates: start: 201207
  2. NUVARING [Suspect]
     Indication: MENSTRUATION IRREGULAR

REACTIONS (4)
  - Anxiety [Unknown]
  - Device expulsion [Unknown]
  - Metrorrhagia [Unknown]
  - Nervousness [Unknown]
